FAERS Safety Report 6608940-X (Version None)
Quarter: 2010Q1

REPORT INFORMATION
  Report Type: 
  Country: None (occurrence: None)
  Receive Date: 20100301
  Receipt Date: 20100225
  Transmission Date: 20100710
  Serious: Yes (Hospitalization, Other)
  Sender: FDA-Public Use
  Company Number: FR-ROXANE LABORATORIES, INC.-2010-RO-00201RO

PATIENT
  Age: 54 Year
  Sex: Male

DRUGS (4)
  1. METHOTREXATE [Suspect]
     Indication: PSORIASIS
     Route: 048
     Dates: start: 19980101, end: 20010101
  2. METHOTREXATE [Suspect]
     Dates: start: 20040701
  3. FOLIC ACID [Suspect]
     Indication: PSORIASIS
     Dates: start: 20040701
  4. KETOPROFEN [Suspect]
     Indication: PSORIASIS
     Dosage: 200 MG
     Dates: start: 20040701

REACTIONS (4)
  - DRUG TOXICITY [None]
  - HERNIAL EVENTRATION [None]
  - PSORIASIS [None]
  - SKIN ULCER [None]
